FAERS Safety Report 16885216 (Version 1)
Quarter: 2019Q4

REPORT INFORMATION
  Report Type: Spontaneous
  Country: GB (occurrence: GB)
  Receive Date: 20191004
  Receipt Date: 20191004
  Transmission Date: 20200122
  Serious: Yes (Other)
  Sender: FDA-Public Use
  Company Number: GB-MYLANLABS-2019M1091747

PATIENT
  Age: 30 Year
  Sex: Female
  Weight: 80 kg

DRUGS (5)
  1. LYSINE ASPIRIN [Concomitant]
     Active Substance: ASPIRIN DL-LYSINE
     Indication: MIGRAINE WITH AURA
     Dosage: TAKE ONE AT FIRST WARNING OF MIGRAINE
     Dates: start: 20190209
  2. ZOLMITRIPTAN. [Suspect]
     Active Substance: ZOLMITRIPTAN
     Indication: PRODUCT USED FOR UNKNOWN INDICATION
     Dosage: 2.5 MILLIGRAM, SUGAR FREE
     Dates: start: 20190430
  3. METOCLOPRAMIDE. [Concomitant]
     Active Substance: METOCLOPRAMIDE
     Dosage: 3 DOSAGE FORM, QD
     Dates: start: 20190408
  4. NORTRIPTYLINE [Concomitant]
     Active Substance: NORTRIPTYLINE
     Dosage: AT NIGHT AND WEAN AND STOP AS DIRECTED
     Dates: start: 20190209
  5. PROPRANOLOL [Concomitant]
     Active Substance: PROPRANOLOL HYDROCHLORIDE
     Dosage: 1 DOSAGE FORM, QD
     Dates: start: 20190408

REACTIONS (1)
  - Oral discomfort [Recovered/Resolved]

NARRATIVE: CASE EVENT DATE: 20190430
